FAERS Safety Report 6173405-9 (Version None)
Quarter: 2009Q2

REPORT INFORMATION
  Report Type: 
  Country: None (occurrence: None)
  Receive Date: 20090430
  Receipt Date: 20090424
  Transmission Date: 20091009
  Serious: Yes (Hospitalization)
  Sender: FDA-Public Use
  Company Number: FR-WATSON-2009-02908

PATIENT
  Sex: Male

DRUGS (2)
  1. TRELSTAR LA [Suspect]
     Indication: PROSTATE CANCER
     Dosage: 11.25 MG, EVERY 3 MONTHS
     Route: 030
     Dates: start: 20071101, end: 20080821
  2. CASODEX [Suspect]
     Indication: PROSTATE CANCER
     Dosage: 1 TABLET, DAILY
     Route: 048
     Dates: start: 20071108, end: 20071208

REACTIONS (6)
  - ARTHRALGIA [None]
  - EYE IRRITATION [None]
  - EYELID IRRITATION [None]
  - JOINT SWELLING [None]
  - OEDEMA PERIPHERAL [None]
  - OSTEOPENIA [None]
